FAERS Safety Report 14884218 (Version 2)
Quarter: 2018Q2

REPORT INFORMATION
  Report Type: Spontaneous
  Country: US (occurrence: US)
  Receive Date: 20180511
  Receipt Date: 20180514
  Transmission Date: 20180711
  Serious: No
  Sender: FDA-Public Use
  Company Number: US-TOLMAR, INC.-TOLG20180251

PATIENT
  Sex: Male

DRUGS (1)
  1. ERYTHROMYCIN AND BENZOYL PEROXIDE [Suspect]
     Active Substance: BENZOYL PEROXIDE\ERYTHROMYCIN
     Indication: ACNE
     Dosage: APPLIED TO FACE
     Route: 061
     Dates: start: 201803, end: 20180502

REACTIONS (4)
  - Product physical issue [None]
  - Drug ineffective [Not Recovered/Not Resolved]
  - Product reconstitution quality issue [None]
  - Product physical consistency issue [None]
